FAERS Safety Report 18569011 (Version 1)
Quarter: 2020Q4

REPORT INFORMATION
  Report Type: Spontaneous
  Country: US (occurrence: US)
  Receive Date: 20201201
  Receipt Date: 20201201
  Transmission Date: 20210114
  Serious: No
  Sender: FDA-Public Use
  Company Number: None

PATIENT
  Age: 69 Year
  Sex: Female
  Weight: 78.75 kg

DRUGS (11)
  1. OMEPRASOLE [Concomitant]
     Active Substance: OMEPRAZOLE
  2. MAGNESIUM [Concomitant]
     Active Substance: MAGNESIUM
  3. ADVAIT [Concomitant]
  4. TRAZODONE [Concomitant]
     Active Substance: TRAZODONE HYDROCHLORIDE
  5. MELATONIN [Concomitant]
     Active Substance: MELATONIN
  6. VITAMIN C AND D [Concomitant]
  7. ULTRAZYME [Concomitant]
  8. FLONASE [Concomitant]
     Active Substance: FLUTICASONE PROPIONATE
  9. PROVENTIL [Concomitant]
     Active Substance: ALBUTEROL
  10. ALIGN [Concomitant]
     Active Substance: BIFIDOBACTERIUM LONGUM SUBSP. INFANTIS
  11. ALBUTEROL SULFATE INHALATION AEROSOL HFA WITH DOSE INDICATOR [Suspect]
     Active Substance: ALBUTEROL SULFATE
     Indication: ASTHMA
     Dosage: ?          OTHER STRENGTH:MCG;QUANTITY:2 PUFF(S);?
     Route: 055
     Dates: start: 19870701, end: 20200501

REACTIONS (2)
  - Condition aggravated [None]
  - Device malfunction [None]

NARRATIVE: CASE EVENT DATE: 20200101
